FAERS Safety Report 5287567-9 (Version None)
Quarter: 2007Q1

REPORT INFORMATION
  Report Type: 
  Country: None (occurrence: None)
  Receive Date: 20070126
  Receipt Date: 20051213
  Transmission Date: 20070707
  Serious: No
  Sender: FDA-Public Use
  Company Number: 2006CT001084

PATIENT
  Age: 80 Year
  Sex: Female
  Weight: 82.6 kg

DRUGS (12)
  1. VENTAVIS [Suspect]
     Indication: CARDIAC DISORDER
     Dosage: 2.5 UG; 4- 6X/DAY; INH
     Route: 055
     Dates: start: 20051021, end: 20051212
  2. VENTAVIS [Suspect]
     Indication: SYSTEMIC SCLEROSIS
     Dosage: 2.5 UG; 4- 6X/DAY; INH
     Route: 055
     Dates: start: 20051021, end: 20051212
  3. IMDUR [Concomitant]
  4. SPIRONOLACTONE [Concomitant]
  5. FUROSEMIDE [Concomitant]
  6. OXYCODONE HCL AND ACETAMINOPHEN [Concomitant]
  7. NEFAZDONE [Concomitant]
  8. AMLODIPINE [Concomitant]
  9. TOPROL-XL [Concomitant]
  10. LISINOPRIL [Concomitant]
  11. PANTOPRAZOLE [Concomitant]
  12. WARFARIN [Concomitant]

REACTIONS (2)
  - CHEST DISCOMFORT [None]
  - PHARYNGOLARYNGEAL PAIN [None]
